FAERS Safety Report 4901117-5 (Version None)
Quarter: 2006Q1

REPORT INFORMATION
  Report Type: 
  Country: None (occurrence: None)
  Receive Date: 20060113
  Receipt Date: 20050929
  Transmission Date: 20060701
  Serious: No
  Sender: FDA-Public Use
  Company Number: 2005SP000449

PATIENT
  Age: 73 Year
  Sex: Female
  Weight: 62.5964 kg

DRUGS (5)
  1. LUNESTA [Suspect]
     Indication: INSOMNIA
     Dosage: 3 MG;HS;ORAL
     Route: 048
     Dates: start: 20050419
  2. METOPROLOL [Concomitant]
  3. VALSARTAN [Concomitant]
  4. FUROSEMIDE [Concomitant]
  5. ESTROGENS CONJUGATED [Concomitant]

REACTIONS (2)
  - DRUG INEFFECTIVE [None]
  - INSOMNIA [None]
